FAERS Safety Report 14099798 (Version 1)
Quarter: 2017Q4

REPORT INFORMATION
  Report Type: Report from Study
  Country: FR (occurrence: FR)
  Receive Date: 20171017
  Receipt Date: 20171017
  Transmission Date: 20180321
  Serious: Yes (Hospitalization)
  Sender: FDA-Public Use
  Company Number: FR-ASTELLAS-2017US015823

PATIENT
  Age: 77 Year
  Sex: Female
  Weight: 64 kg

DRUGS (19)
  1. SKENAN [Concomitant]
     Active Substance: MORPHINE SULFATE
     Indication: PAIN
     Dosage: UNK UNK, UNKNOWN FREQ.
     Route: 048
  2. FUCIDINE                           /00065701/ [Concomitant]
     Active Substance: FUSIDIC ACID
     Indication: RASH
     Dosage: UNK UNK, UNKNOWN FREQ.
     Route: 061
     Dates: start: 20170222
  3. MOVICOL [Concomitant]
     Active Substance: POLYETHYLENE GLYCOL 3350\POTASSIUM CHLORIDE\SODIUM BICARBONATE\SODIUM CHLORIDE
     Indication: CONSTIPATION
     Dosage: UNK UNK, UNKNOWN FREQ.
     Route: 048
     Dates: start: 20170421
  4. ERLOTINIB [Suspect]
     Active Substance: ERLOTINIB
     Route: 048
     Dates: start: 20170503
  5. AMOXICILLINE                       /00249602/ [Concomitant]
     Active Substance: AMOXICILLIN
     Indication: RASH
     Dosage: UNK UNK, UNKNOWN FREQ.
     Route: 048
     Dates: start: 20170420
  6. DAKIN                              /00166003/ [Concomitant]
     Indication: PALMAR-PLANTAR ERYTHRODYSAESTHESIA SYNDROME
     Dosage: UNK UNK, UNKNOWN FREQ.
     Route: 061
     Dates: start: 20170421
  7. DIPROSONE                          /00008502/ [Concomitant]
     Active Substance: BETAMETHASONE SODIUM PHOSPHATE
     Indication: RASH
     Dosage: UNK UNK, UNKNOWN FREQ.
     Route: 061
     Dates: start: 20170220
  8. PREDNISOLONE. [Concomitant]
     Active Substance: PREDNISOLONE
     Indication: RASH
     Dosage: UNK UNK, UNKNOWN FREQ.
     Route: 048
     Dates: start: 20170420
  9. FLAMMAZINE [Concomitant]
     Active Substance: SILVER SULFADIAZINE
     Indication: RASH
     Dosage: UNK UNK, UNKNOWN FREQ.
     Route: 061
     Dates: start: 20170418, end: 20170421
  10. EFFERALGAN COD. [Concomitant]
     Indication: PAIN
     Dosage: UNK UNK, UNKNOWN FREQ.
     Route: 048
     Dates: start: 20170124
  11. LYSANXIA [Concomitant]
     Active Substance: PRAZEPAM
     Indication: ANXIETY
     Dosage: UNK UNK, UNKNOWN FREQ.
     Route: 048
     Dates: start: 20170124
  12. CRESTOR [Concomitant]
     Active Substance: ROSUVASTATIN CALCIUM
     Indication: MITRAL VALVE INCOMPETENCE
     Dosage: UNK UNK, UNKNOWN FREQ.
     Route: 048
  13. EFFERALGAN [Concomitant]
     Active Substance: ACETAMINOPHEN
     Indication: ARTHRALGIA
     Dosage: UNK UNK, UNKNOWN FREQ.
     Route: 048
  14. PARACETAMOL [Concomitant]
     Active Substance: ACETAMINOPHEN
     Indication: PAIN
     Dosage: UNK UNK, UNKNOWN FREQ.
     Route: 048
  15. ECONAZOLE [Concomitant]
     Active Substance: ECONAZOLE
     Indication: RASH
     Dosage: UNK UNK, UNKNOWN FREQ.
     Route: 061
     Dates: start: 20170418
  16. PRAZEPAM [Concomitant]
     Active Substance: PRAZEPAM
     Indication: ANXIETY
     Dosage: UNK UNK, UNKNOWN FREQ.
     Route: 048
     Dates: start: 20170421
  17. ERLOTINIB [Suspect]
     Active Substance: ERLOTINIB
     Indication: NON-SMALL CELL LUNG CANCER
     Route: 048
     Dates: start: 20170201, end: 20170419
  18. ROZEX (METRONIDAZOLE) [Concomitant]
     Active Substance: METRONIDAZOLE
     Indication: RASH
     Dosage: UNK UNK, UNKNOWN FREQ.
     Route: 061
     Dates: start: 20170220
  19. BETNEVAL [Concomitant]
     Active Substance: BETAMETHASONE VALERATE
     Indication: RASH
     Dosage: UNK UNK, UNKNOWN FREQ.
     Route: 061
     Dates: start: 20170418

REACTIONS (1)
  - Drug eruption [Recovered/Resolved]

NARRATIVE: CASE EVENT DATE: 20170421
